FAERS Safety Report 10235270 (Version 1)
Quarter: 2014Q2

REPORT INFORMATION
  Report Type: Spontaneous
  Country: US (occurrence: None)
  Receive Date: 20140612
  Receipt Date: 20140612
  Transmission Date: 20141212
  Serious: Yes (Other)
  Sender: FDA-Public Use
  Company Number: None

PATIENT
  Age: 69 Year
  Sex: Male
  Weight: 68.04 kg

DRUGS (1)
  1. GABAPENTIN [Suspect]
     Indication: NEURALGIA
     Dosage: 100MGX3
     Route: 048

REACTIONS (6)
  - Lethargy [None]
  - Feeling abnormal [None]
  - Abdominal discomfort [None]
  - Asthenia [None]
  - Insomnia [None]
  - Nausea [None]
